FAERS Safety Report 8033426 (Version 2)
Quarter: 2012Q4

REPORT INFORMATION
  Report Type: 
  Country: US (occurrence: US)
  Receive Date: 20110713
  Receipt Date: 20121130
  Transmission Date: 20130627
  Serious: Yes (Hospitalization)
  Sender: FDA-Public Use
  Company Number: US-JNJFOC-20110703366

PATIENT
  Age: 38 Year
  Sex: Female

DRUGS (3)
  1. PARACETAMOL [Suspect]
     Route: 048
  2. PARACETAMOL [Suspect]
     Indication: PRODUCT USED FOR UNKNOWN INDICATION
     Dosage: 39 grams
     Route: 048
     Dates: start: 20070908
  3. DARVOCET N100 [Suspect]
     Indication: PRODUCT USED FOR UNKNOWN INDICATION
     Dosage: (650 mg acetaminophen/100 mg propoxyphene per tablet; 39 grams

of acetaminophen total)
     Route: 048
     Dates: start: 20070908

REACTIONS (3)
  - Intentional overdose [Recovering/Resolving]
  - Liver injury [Recovering/Resolving]
  - Alanine aminotransferase increased [None]
